FAERS Safety Report 5395789-1 (Version None)
Quarter: 2007Q3

REPORT INFORMATION
  Report Type: 
  Country: None (occurrence: None)
  Receive Date: 20070724
  Receipt Date: 20070712
  Transmission Date: 20080115
  Serious: Yes (Other)
  Sender: FDA-Public Use
  Company Number: US-PFIZER INC-2005130722

PATIENT
  Sex: Male
  Weight: 117.9 kg

DRUGS (3)
  1. CELEBREX [Suspect]
     Indication: BACK PAIN
     Route: 048
     Dates: start: 20000301, end: 20050109
  2. TRAMADOL HCL [Concomitant]
  3. MELOXICAM [Concomitant]

REACTIONS (3)
  - CARDIAC ARREST [None]
  - EJECTION FRACTION DECREASED [None]
  - MYOCARDIAL INFARCTION [None]
